FAERS Safety Report 7538974-2 (Version None)
Quarter: 2011Q2

REPORT INFORMATION
  Report Type: 
  Country: None (occurrence: None)
  Receive Date: 20110610
  Receipt Date: 20110531
  Transmission Date: 20111010
  Serious: Yes (Hospitalization, Other)
  Sender: FDA-Public Use
  Company Number: JP-JNJFOC-20110308567

PATIENT
  Sex: Female
  Weight: 23.13 kg

DRUGS (19)
  1. LAXOBERON [Concomitant]
     Indication: CONSTIPATION
     Route: 048
  2. PREDNISOLONE [Concomitant]
     Indication: INTERSTITIAL LUNG DISEASE
     Route: 042
     Dates: start: 20100311, end: 20100315
  3. ANTEBATE [Concomitant]
     Dosage: 0.05 %, STARTED ON 05-MAR-2010
     Route: 065
     Dates: start: 20100301, end: 20100301
  4. AZUNOL [Concomitant]
     Indication: PROPHYLAXIS
     Route: 049
     Dates: start: 20091210
  5. DAI-KENCHU-TO [Concomitant]
     Indication: CONSTIPATION
     Route: 048
  6. KYTRIL [Concomitant]
     Indication: PROPHYLAXIS
     Route: 042
     Dates: start: 20100212, end: 20100212
  7. PYDOXAL [Concomitant]
     Indication: PROPHYLAXIS
     Route: 048
     Dates: start: 20091225
  8. HOCHU-EKKI-TO [Concomitant]
     Indication: OVARIAN CANCER RECURRENT
     Route: 048
  9. HEAVY MAGNESIUM OXIDE [Concomitant]
     Indication: CONSTIPATION
     Route: 048
  10. MODACIN [Concomitant]
     Indication: INTERSTITIAL LUNG DISEASE
     Route: 042
     Dates: start: 20100307, end: 20100308
  11. CONCENTRATED RED CELLS [Concomitant]
     Indication: ANAEMIA
     Dosage: DOSE- 4 LUX
     Route: 041
     Dates: start: 20100308, end: 20100308
  12. DOXORUBICIN HCL [Suspect]
     Indication: OVARIAN CANCER RECURRENT
     Route: 042
     Dates: start: 20100212, end: 20100212
  13. MAGNESIUM OXIDE [Concomitant]
     Indication: CONSTIPATION
     Route: 048
  14. DOXORUBICIN HCL [Suspect]
     Route: 042
     Dates: start: 20100114, end: 20100114
  15. CIPROFLOXACIN [Concomitant]
     Indication: INTERSTITIAL LUNG DISEASE
     Route: 042
     Dates: start: 20100308, end: 20100314
  16. DOXORUBICIN HCL [Suspect]
     Route: 042
     Dates: start: 20091210, end: 20091210
  17. DECADRON [Concomitant]
     Indication: PROPHYLAXIS
     Route: 042
     Dates: start: 20100212, end: 20100212
  18. FUNGUARD [Concomitant]
     Indication: INTERSTITIAL LUNG DISEASE
     Route: 042
     Dates: start: 20100310, end: 20100314
  19. SULFAMETHOXAZOLE [Concomitant]
     Indication: INTERSTITIAL LUNG DISEASE
     Route: 048
     Dates: start: 20100310, end: 20100330

REACTIONS (2)
  - INTERSTITIAL LUNG DISEASE [None]
  - ANAEMIA [None]
